FAERS Safety Report 15169842 (Version 1)
Quarter: 2018Q3

REPORT INFORMATION
  Report Type: Spontaneous
  Country: ZA (occurrence: ZA)
  Receive Date: 20180720
  Receipt Date: 20180720
  Transmission Date: 20181010
  Serious: Yes (Death)
  Sender: FDA-Public Use
  Company Number: ZA-DRREDDYS-SAF/SAF/18/0101664

PATIENT
  Age: 88 Year
  Sex: Female

DRUGS (4)
  1. MYLAN FUROSEMIDE [Suspect]
     Active Substance: FUROSEMIDE
     Indication: DIURETIC THERAPY
     Route: 048
     Dates: start: 201710, end: 201802
  2. DOPAQUEL [Suspect]
     Active Substance: QUETIAPINE
     Indication: MENTAL DISORDER
     Route: 048
     Dates: start: 201710, end: 201802
  3. CARBILEV [Suspect]
     Active Substance: CARBIDOPA\LEVODOPA
     Indication: PARKINSON^S DISEASE
     Route: 048
     Dates: start: 201709, end: 201802
  4. PURATA [Suspect]
     Active Substance: OXAZEPAM
     Indication: ANXIETY
     Route: 048
     Dates: start: 201709, end: 201802

REACTIONS (1)
  - Death [Fatal]

NARRATIVE: CASE EVENT DATE: 20180213
